FAERS Safety Report 5977379-2 (Version None)
Quarter: 2008Q4

REPORT INFORMATION
  Report Type: 
  Country: None (occurrence: None)
  Receive Date: 20081203
  Receipt Date: 20081126
  Transmission Date: 20090506
  Serious: Yes (Other)
  Sender: FDA-Public Use
  Company Number: PHHY2008BR23609

PATIENT
  Sex: Female
  Weight: 124 kg

DRUGS (3)
  1. FORADIL / FOR 258A / CGP 25827 [Suspect]
     Indication: BRONCHITIS
     Dosage: UNK
  2. BUDECORT [Concomitant]
     Indication: RHINITIS
     Dosage: 2 DOSES IN BOTH NOSTRILS WHEN NEEDED
     Route: 045
  3. ALDOMET [Concomitant]
     Dosage: 1 DF, Q6H
     Route: 048

REACTIONS (5)
  - BRONCHITIS [None]
  - DIABETES MELLITUS [None]
  - DRUG EXPOSURE DURING PREGNANCY [None]
  - FATIGUE [None]
  - HYPERTENSION [None]
